FAERS Safety Report 5910819-3 (Version None)
Quarter: 2008Q4

REPORT INFORMATION
  Report Type: 
  Country: None (occurrence: None)
  Receive Date: 20081006
  Receipt Date: 20081006
  Transmission Date: 20090506
  Serious: Yes (Life-Threatening)
  Sender: FDA-Public Use
  Company Number: None

PATIENT
  Age: 52 Year
  Sex: Female
  Weight: 37 kg

DRUGS (2)
  1. BACTRIM DS [Suspect]
     Indication: KLEBSIELLA INFECTION
     Dosage: ONE DS TABLET BID PO
     Route: 048
     Dates: start: 20080923, end: 20080928
  2. BACTRIM DS [Suspect]
     Indication: URINARY TRACT INFECTION
     Dosage: ONE DS TABLET BID PO
     Route: 048
     Dates: start: 20080923, end: 20080928

REACTIONS (12)
  - ACUTE HEPATIC FAILURE [None]
  - ALANINE AMINOTRANSFERASE INCREASED [None]
  - ALCOHOL USE [None]
  - ASPARTATE AMINOTRANSFERASE INCREASED [None]
  - ASTERIXIS [None]
  - BLOOD BILIRUBIN INCREASED [None]
  - BLOOD PRESSURE DIASTOLIC DECREASED [None]
  - DEHYDRATION [None]
  - INTERNATIONAL NORMALISED RATIO INCREASED [None]
  - JAUNDICE [None]
  - PETECHIAE [None]
  - RENAL FAILURE ACUTE [None]
